FAERS Safety Report 8196539-6 (Version None)
Quarter: 2012Q1

REPORT INFORMATION
  Report Type: 
  Country: None (occurrence: None)
  Receive Date: 20120309
  Receipt Date: 20120302
  Transmission Date: 20120608
  Serious: Yes (Death, Life-Threatening, Hospitalization, Other)
  Sender: FDA-Public Use
  Company Number: IT-BRISTOL-MYERS SQUIBB COMPANY-16409773

PATIENT
  Age: 65 Year
  Sex: Male

DRUGS (10)
  1. PEMETREXED DISODIUM [Suspect]
     Indication: NON-SMALL CELL LUNG CANCER
     Dosage: 20DEC11-UNK,500MG/M2 UNK-23JAN12,750MG
     Route: 042
     Dates: start: 20111220, end: 20120207
  2. PENTETRAZOL [Concomitant]
     Dates: start: 20120207
  3. CISPLATIN [Suspect]
     Indication: NON-SMALL CELL LUNG CANCER
     Dosage: 20DEC11-23JAN2012,75MG.M2 UNK-23JAN2012,75MG
     Route: 042
     Dates: start: 20111220, end: 20120207
  4. ISOPTIN [Concomitant]
     Dates: start: 20120207
  5. VITAMIN B-12 [Concomitant]
     Indication: PROPHYLAXIS
     Dates: start: 20111213, end: 20120207
  6. DEXAMETHASONE [Concomitant]
     Indication: PROPHYLAXIS
     Dates: start: 20111213, end: 20120124
  7. ENOXAPARIN SODIUM [Concomitant]
     Dates: start: 20120207
  8. METHYLPREDNISOLONE [Concomitant]
     Dates: start: 20120207
  9. FOLIC ACID [Concomitant]
     Indication: PROPHYLAXIS
     Dates: start: 20111213, end: 20120207
  10. TACHIDOL [Concomitant]
     Dates: start: 20120207

REACTIONS (21)
  - ANAEMIA [None]
  - ANURIA [None]
  - FATIGUE [None]
  - NON-SMALL CELL LUNG CANCER [None]
  - NEOPLASM PROGRESSION [None]
  - BLOOD CREATININE INCREASED [None]
  - CONFUSIONAL STATE [None]
  - NEOPLASM MALIGNANT [None]
  - HAEMOGLOBIN DECREASED [None]
  - BLOOD PRESSURE IMMEASURABLE [None]
  - MULTI-ORGAN FAILURE [None]
  - VOMITING [None]
  - DECREASED APPETITE [None]
  - BLOOD POTASSIUM INCREASED [None]
  - LOSS OF CONSCIOUSNESS [None]
  - RESPIRATION ABNORMAL [None]
  - PLATELET COUNT DECREASED [None]
  - NEUTROPHIL COUNT INCREASED [None]
  - GENERAL PHYSICAL HEALTH DETERIORATION [None]
  - HYPERURICAEMIA [None]
  - HYPOCALCAEMIA [None]
